FAERS Safety Report 19815794 (Version 2)
Quarter: 2021Q4

REPORT INFORMATION
  Report Type: Spontaneous
  Country: US (occurrence: US)
  Receive Date: 20210909
  Receipt Date: 20211004
  Transmission Date: 20220303
  Serious: No
  Sender: FDA-Public Use
  Company Number: 2021A679536

PATIENT
  Age: 21766 Day
  Sex: Male
  Weight: 44.5 kg

DRUGS (4)
  1. BYDUREON BCISE [Suspect]
     Active Substance: EXENATIDE
     Indication: Diabetes mellitus
     Route: 058
  2. METFORMIN [Concomitant]
     Active Substance: METFORMIN HYDROCHLORIDE
  3. BLOOD PRESSURE MED [Concomitant]
  4. CHOLESTEROL MED [Concomitant]

REACTIONS (4)
  - Injection site nodule [Unknown]
  - Incorrect dose administered by device [Unknown]
  - Device defective [Unknown]
  - Device leakage [Unknown]

NARRATIVE: CASE EVENT DATE: 20210811
